FAERS Safety Report 7443716-5 (Version None)
Quarter: 2011Q2

REPORT INFORMATION
  Report Type: 
  Country: None (occurrence: None)
  Receive Date: 20110428
  Receipt Date: 20110419
  Transmission Date: 20111010
  Serious: Yes (Other)
  Sender: FDA-Public Use
  Company Number: US-AMGEN-USASP2011020489

PATIENT
  Age: 4 Year
  Sex: Female

DRUGS (2)
  1. METHOTREXATE [Concomitant]
     Dosage: UNK
     Dates: start: 20100101
  2. ENBREL [Suspect]
     Indication: JUVENILE ARTHRITIS
     Dosage: 15 MG, QWK
     Dates: start: 20110115

REACTIONS (2)
  - LIMB ASYMMETRY [None]
  - HEPATIC ENZYME INCREASED [None]
